FAERS Safety Report 5179216-5 (Version None)
Quarter: 2006Q4

REPORT INFORMATION
  Report Type: 
  Country: None (occurrence: None)
  Receive Date: 20061219
  Receipt Date: 20061206
  Transmission Date: 20070319
  Serious: Yes (Hospitalization, Disabling)
  Sender: FDA-Public Use
  Company Number: 2006CG02015

PATIENT
  Age: 58 Year
  Sex: Male

DRUGS (3)
  1. SYMBICORT TURBUHALER 200 [Suspect]
     Indication: INCREASED BRONCHIAL SECRETION
     Dosage: 160/4.5 UG PER DOSE TWICE DAILY
     Route: 055
     Dates: start: 20060517, end: 20060520
  2. SYMBICORT TURBUHALER 200 [Suspect]
     Indication: DYSPNOEA
     Dosage: 160/4.5 UG PER DOSE TWICE DAILY
     Route: 055
     Dates: start: 20060517, end: 20060520
  3. NASONEX [Suspect]
     Indication: NASAL CONGESTION
     Route: 045
     Dates: start: 20060517, end: 20060520

REACTIONS (3)
  - AORTIC VALVE INCOMPETENCE [None]
  - ATRIAL FIBRILLATION [None]
  - MITRAL VALVE INCOMPETENCE [None]
